FAERS Safety Report 17207182 (Version 3)
Quarter: 2020Q1

REPORT INFORMATION
  Report Type: Spontaneous
  Country: FR (occurrence: FR)
  Receive Date: 20191227
  Receipt Date: 20200206
  Transmission Date: 20200409
  Serious: Yes (Hospitalization, Other)
  Sender: FDA-Public Use
  Company Number: FR-ASTRAZENECA-2019SF86285

PATIENT
  Age: 86 Year
  Sex: Female

DRUGS (10)
  1. BETAXOLOL. [Suspect]
     Active Substance: BETAXOLOL
     Indication: TOXICITY TO VARIOUS AGENTS
     Dosage: UNKNOWN
     Route: 048
     Dates: start: 20191110, end: 20191110
  2. PRAVASTATIN SODIUM. [Suspect]
     Active Substance: PRAVASTATIN SODIUM
     Indication: TOXICITY TO VARIOUS AGENTS
     Dosage: UNKNOWN
     Route: 048
     Dates: start: 20191110, end: 20191110
  3. PERINDOPRIL [Suspect]
     Active Substance: PERINDOPRIL
     Indication: TOXICITY TO VARIOUS AGENTS
     Dosage: UNKNOWN
     Route: 048
     Dates: start: 20191110, end: 20191110
  4. ESOMEPRAZOLE. [Suspect]
     Active Substance: ESOMEPRAZOLE MAGNESIUM
     Indication: TOXICITY TO VARIOUS AGENTS
     Dosage: UNKNOWN
     Route: 048
     Dates: start: 20191110, end: 20191110
  5. XARELTO [Suspect]
     Active Substance: RIVAROXABAN
     Indication: TOXICITY TO VARIOUS AGENTS
     Dosage: UNKNOWN
     Route: 048
     Dates: start: 20191110, end: 20191110
  6. PARACETAMOL [Suspect]
     Active Substance: ACETAMINOPHEN
     Indication: TOXICITY TO VARIOUS AGENTS
     Dosage: UNKNOWN
     Route: 048
     Dates: start: 20191110, end: 20191110
  7. AMIODARONE [Suspect]
     Active Substance: AMIODARONE
     Indication: TOXICITY TO VARIOUS AGENTS
     Dosage: UNKNOWN
     Route: 048
     Dates: start: 20191110, end: 20191110
  8. DONEPEZIL. [Suspect]
     Active Substance: DONEPEZIL
     Indication: TOXICITY TO VARIOUS AGENTS
     Dosage: UNKNOWN
     Route: 048
     Dates: start: 20191110, end: 20191110
  9. TRAMADOL HYDROCHLORIDE. [Suspect]
     Active Substance: TRAMADOL HYDROCHLORIDE
     Indication: TOXICITY TO VARIOUS AGENTS
     Dosage: UNKNOWN
     Route: 048
     Dates: start: 20191110, end: 20191110
  10. SPAGULAX [Suspect]
     Active Substance: PLANTAGO OVATA SEED
     Indication: TOXICITY TO VARIOUS AGENTS
     Dosage: UNKNOWN
     Route: 048
     Dates: start: 20191110, end: 20191110

REACTIONS (5)
  - Poisoning deliberate [Unknown]
  - Product use in unapproved indication [Unknown]
  - Bradycardia [Not Recovered/Not Resolved]
  - Electrocardiogram QT prolonged [Not Recovered/Not Resolved]
  - Off label use [Unknown]

NARRATIVE: CASE EVENT DATE: 20191110
